FAERS Safety Report 21183514 (Version 1)
Quarter: 2022Q3

REPORT INFORMATION
  Report Type: Report from Study
  Country: US (occurrence: US)
  Receive Date: 20220808
  Receipt Date: 20220808
  Transmission Date: 20221026
  Serious: Yes (Hospitalization, Other)
  Sender: FDA-Public Use
  Company Number: US-GILEAD-2022-0592682

PATIENT

DRUGS (5)
  1. AMBRISENTAN [Suspect]
     Active Substance: AMBRISENTAN
     Indication: Pulmonary hypertension
     Dosage: 5 MG, QD
     Route: 065
     Dates: start: 202006
  2. ORENITRAM [Suspect]
     Active Substance: TREPROSTINIL
     Indication: Pulmonary hypertension
     Dosage: 3 MG, TID
     Route: 065
     Dates: start: 202012
  3. BUMEX [Concomitant]
     Active Substance: BUMETANIDE
  4. HYDRALAZINE [Concomitant]
     Active Substance: HYDRALAZINE HYDROCHLORIDE
  5. TORSEMIDE [Concomitant]
     Active Substance: TORSEMIDE

REACTIONS (2)
  - Blood potassium decreased [Unknown]
  - Hypervolaemia [Unknown]
